FAERS Safety Report 24859031 (Version 2)
Quarter: 2025Q1

REPORT INFORMATION
  Report Type: Other
  Country: GB (occurrence: GB)
  Receive Date: 20250118
  Receipt Date: 20250321
  Transmission Date: 20250408
  Serious: Yes (Disabling, Other)
  Sender: MACLEODS
  Company Number: None

PATIENT

DRUGS (2)
  1. LEVOFLOXACIN [Suspect]
     Active Substance: LEVOFLOXACIN
     Indication: Product used for unknown indication
     Route: 065
  2. PREDNISOLONE [Concomitant]
     Active Substance: PREDNISOLONE
     Indication: Pneumonitis
     Route: 065

REACTIONS (3)
  - Medication error [Unknown]
  - Tendonitis [Not Recovered/Not Resolved]
  - Neuropathy peripheral [Not Recovered/Not Resolved]

NARRATIVE: CASE EVENT DATE: 20240101
